FAERS Safety Report 7043895-8 (Version None)
Quarter: 2010Q4

REPORT INFORMATION
  Report Type: 
  Country: None (occurrence: None)
  Receive Date: 20101012
  Receipt Date: 20101012
  Transmission Date: 20110411
  Serious: No
  Sender: FDA-Public Use
  Company Number: None

PATIENT
  Age: 38 Year
  Sex: Female
  Weight: 78.0187 kg

DRUGS (4)
  1. LEVAQUIN [Suspect]
     Indication: ACUTE SINUSITIS
     Dosage: 500MG QDAY PO
     Route: 048
     Dates: start: 20100502, end: 20100521
  2. PRDIENOSE [Concomitant]
  3. NASONEX [Concomitant]
  4. PATANASE [Concomitant]

REACTIONS (3)
  - ABASIA [None]
  - ASTHENIA [None]
  - TENDON PAIN [None]
